FAERS Safety Report 5793343-0 (Version None)
Quarter: 2008Q2

REPORT INFORMATION
  Report Type: 
  Country: None (occurrence: None)
  Receive Date: 20080627
  Receipt Date: 20080619
  Transmission Date: 20081010
  Serious: Yes (Other)
  Sender: FDA-Public Use
  Company Number: B0400701A

PATIENT
  Age: 50 Year
  Sex: Male

DRUGS (7)
  1. SEROXAT [Suspect]
     Indication: DEPRESSION
     Route: 065
     Dates: start: 20011228
  2. AMITRIPTYLINE HCL [Concomitant]
     Indication: DEPRESSION
  3. UNSPECIFIED DRUGS [Concomitant]
     Indication: DEPRESSION
  4. DIAZEPAM [Concomitant]
     Dates: start: 19890724
  5. PROZAC [Concomitant]
     Dates: start: 19970123
  6. AMITRIPTYLINE HCL [Concomitant]
     Dates: start: 19940507
  7. VENTOLIN [Concomitant]

REACTIONS (21)
  - AGGRESSION [None]
  - AGITATION [None]
  - ANGER [None]
  - ANXIETY [None]
  - DEPRESSION [None]
  - DISTURBANCE IN ATTENTION [None]
  - DYSPHEMIA [None]
  - EMOTIONAL DISORDER [None]
  - INSOMNIA [None]
  - LIBIDO DECREASED [None]
  - MEMORY IMPAIRMENT [None]
  - MOOD SWINGS [None]
  - NIGHTMARE [None]
  - OVERDOSE [None]
  - PANIC ATTACK [None]
  - PHYSICAL ASSAULT [None]
  - SLEEP DISORDER [None]
  - SUICIDAL BEHAVIOUR [None]
  - SUICIDAL IDEATION [None]
  - SUICIDE ATTEMPT [None]
  - VIOLENCE-RELATED SYMPTOM [None]
